FAERS Safety Report 19133156 (Version 1)
Quarter: 2021Q2

REPORT INFORMATION
  Report Type: Spontaneous
  Country: GB (occurrence: GB)
  Receive Date: 20210414
  Receipt Date: 20210414
  Transmission Date: 20210717
  Serious: Yes (Other)
  Sender: FDA-Public Use
  Company Number: XI-ROCHE-2804166

PATIENT
  Sex: Male

DRUGS (6)
  1. DIAZEPAM. [Suspect]
     Active Substance: DIAZEPAM
     Indication: ILL-DEFINED DISORDER
  2. LANSOPRAZOLE. [Concomitant]
     Active Substance: LANSOPRAZOLE
     Indication: ILL-DEFINED DISORDER
  3. MENTHA PIPERITA [Concomitant]
     Active Substance: MENTHA PIPERITA
     Indication: ILL-DEFINED DISORDER
  4. DIAZEPAM. [Suspect]
     Active Substance: DIAZEPAM
     Indication: ILL-DEFINED DISORDER
     Route: 065
  5. COCODAMOL [Concomitant]
     Active Substance: ACETAMINOPHEN\CODEINE PHOSPHATE
     Indication: ILL-DEFINED DISORDER
  6. FEXOFENADINE [Concomitant]
     Active Substance: FEXOFENADINE HYDROCHLORIDE
     Indication: ILL-DEFINED DISORDER

REACTIONS (3)
  - Fatigue [Recovering/Resolving]
  - Abnormal dreams [Unknown]
  - Decreased appetite [Recovering/Resolving]
